FAERS Safety Report 16414312 (Version 1)
Quarter: 2019Q2

REPORT INFORMATION
  Report Type: Spontaneous
  Country: US (occurrence: US)
  Receive Date: 20190611
  Receipt Date: 20190611
  Transmission Date: 20190711
  Serious: No
  Sender: FDA-Public Use
  Company Number: US-SUNOVION-2019SUN002329

PATIENT
  Sex: Female

DRUGS (5)
  1. LUNESTA [Suspect]
     Active Substance: ESZOPICLONE
     Dosage: 1.5 MG (1/2 3 MG TABLET)
     Route: 048
  2. LOSARTAN. [Concomitant]
     Active Substance: LOSARTAN
     Indication: CEREBROVASCULAR ACCIDENT
     Dosage: UNK
     Route: 065
  3. MELATONIN [Concomitant]
     Active Substance: MELATONIN
     Indication: INSOMNIA
     Dosage: 5 MG
     Route: 065
  4. KEPPRA [Concomitant]
     Active Substance: LEVETIRACETAM
     Indication: SEIZURE
     Dosage: 500 MG, BID
     Route: 065
  5. LUNESTA [Suspect]
     Active Substance: ESZOPICLONE
     Indication: INSOMNIA
     Dosage: 3 MG
     Route: 048

REACTIONS (8)
  - Drug hypersensitivity [Unknown]
  - Eye pain [Recovered/Resolved]
  - Visual impairment [Unknown]
  - Parosmia [Recovering/Resolving]
  - Insomnia [Unknown]
  - Taste disorder [Recovering/Resolving]
  - Dizziness [Recovering/Resolving]
  - Wrong technique in product usage process [Unknown]
